FAERS Safety Report 25496047 (Version 2)
Quarter: 2025Q3

REPORT INFORMATION
  Report Type: Spontaneous
  Country: EU (occurrence: EU)
  Receive Date: 20250630
  Receipt Date: 20250708
  Transmission Date: 20251021
  Serious: Yes (Hospitalization, Other)
  Sender: MYLAN
  Company Number: EU-ZENTIVA-2025-ZT-039416

PATIENT
  Age: 83 Year
  Sex: Female

DRUGS (1)
  1. FENTANYL [Suspect]
     Active Substance: FENTANYL
     Indication: Product used for unknown indication

REACTIONS (12)
  - Fatigue [Unknown]
  - Bradycardia [Unknown]
  - Dyspnoea [Unknown]
  - Altered state of consciousness [Recovering/Resolving]
  - Acute kidney injury [Unknown]
  - Acute respiratory failure [Unknown]
  - Sepsis [Unknown]
  - Pneumonia [Unknown]
  - Metabolic acidosis [Unknown]
  - Toxicity to various agents [Unknown]
  - Miosis [Unknown]
  - Hypotension [Unknown]
